FAERS Safety Report 16654991 (Version 4)
Quarter: 2020Q3

REPORT INFORMATION
  Report Type: Other
  Country: US (occurrence: US)
  Receive Date: 20190801
  Receipt Date: 20200804
  Transmission Date: 20201102
  Serious: Yes (Other)
  Sender: FDA-Public Use
  Company Number: US-ROCHE-2364198

PATIENT
  Sex: Female

DRUGS (3)
  1. OCREVUS [Suspect]
     Active Substance: OCRELIZUMAB
     Dosage: 300 MG ON DAY 1 AND DAY 15.
     Route: 042
  2. OCREVUS [Suspect]
     Active Substance: OCRELIZUMAB
     Indication: RELAPSING MULTIPLE SCLEROSIS
     Dosage: ONGOING :UNKNOWN 17/DEC/2018, JAN/2019, 29/JUL//2019 AND 30/JAN/2020 RECEIVED OCRELIZUMAB TREATMENT.
     Route: 042
     Dates: start: 20181203
  3. OCREVUS [Suspect]
     Active Substance: OCRELIZUMAB
     Route: 042

REACTIONS (7)
  - Fatigue [Recovering/Resolving]
  - Irritability [Recovered/Resolved]
  - Urinary tract infection [Recovered/Resolved]
  - Confusional state [Unknown]
  - Memory impairment [Not Recovered/Not Resolved]
  - Pneumonia [Recovered/Resolved]
  - Stress [Unknown]

NARRATIVE: CASE EVENT DATE: 2019
